FAERS Safety Report 7710924-5 (Version None)
Quarter: 2011Q3

REPORT INFORMATION
  Report Type: 
  Country: None (occurrence: None)
  Receive Date: 20110825
  Receipt Date: 20110816
  Transmission Date: 20111222
  Serious: Yes (Hospitalization)
  Sender: FDA-Public Use
  Company Number: US-ASTRAZENECA-2008UW26166

PATIENT
  Age: 57 Year
  Sex: Female
  Weight: 108.9 kg

DRUGS (12)
  1. REMERON [Concomitant]
  2. SEROQUEL [Suspect]
     Indication: BIPOLAR DISORDER
     Route: 048
     Dates: start: 20030101, end: 20110101
  3. SEROQUEL [Suspect]
     Route: 048
     Dates: end: 20081001
  4. LISINOPRIL [Suspect]
     Indication: HYPERTENSION
  5. KLONOPIN [Suspect]
  6. SEROQUEL [Suspect]
     Route: 048
     Dates: end: 20081001
  7. SEROQUEL [Suspect]
     Route: 048
     Dates: start: 20110101
  8. UNSPECIFIED MEDICATION [Suspect]
  9. COGENTIN [Concomitant]
  10. SEROQUEL [Suspect]
     Indication: PSYCHOTIC DISORDER
     Route: 048
     Dates: start: 20030101, end: 20110101
  11. SEROQUEL [Suspect]
     Route: 048
     Dates: start: 20110101
  12. BENADRYL [Concomitant]

REACTIONS (9)
  - TINNITUS [None]
  - BALANCE DISORDER [None]
  - OVERDOSE [None]
  - WEIGHT INCREASED [None]
  - SUICIDE ATTEMPT [None]
  - DIZZINESS [None]
  - HYPERTENSION [None]
  - BACK PAIN [None]
  - BLOOD CHOLESTEROL INCREASED [None]
